FAERS Safety Report 20366971 (Version 2)
Quarter: 2023Q1

REPORT INFORMATION
  Report Type: Spontaneous
  Country: US (occurrence: US)
  Receive Date: 20220123
  Receipt Date: 20230204
  Transmission Date: 20230418
  Serious: No
  Sender: FDA-Public Use
  Company Number: US-BIOGEN-2021BI01052931

PATIENT
  Age: 46 Year
  Sex: Female

DRUGS (10)
  1. AMPYRA [Suspect]
     Active Substance: DALFAMPRIDINE
     Indication: Gait disturbance
     Dosage: UNK
     Route: 048
  2. AMPYRA [Suspect]
     Active Substance: DALFAMPRIDINE
     Dosage: UNK, TID
     Route: 065
  3. VUMERITY [Suspect]
     Active Substance: DIROXIMEL FUMARATE
     Indication: Secondary progressive multiple sclerosis
     Dosage: 462 MILLIGRAM, BID
     Route: 048
     Dates: start: 20200930
  4. VUMERITY [Suspect]
     Active Substance: DIROXIMEL FUMARATE
     Dosage: 231 MILLIGRAM, BID (STARTING DOSE)
     Route: 048
  5. VUMERITY [Suspect]
     Active Substance: DIROXIMEL FUMARATE
     Dosage: 231 MILLIGRAM, 4 IN 1 DAY (MAINTENANCE DOSE)
     Route: 048
  6. VUMERITY [Suspect]
     Active Substance: DIROXIMEL FUMARATE
     Dosage: UNK
     Route: 065
     Dates: start: 2019
  7. MODERNA COVID-19 VACCINE [Suspect]
     Active Substance: ELASOMERAN
     Indication: COVID-19 prophylaxis
     Dosage: UNK
     Route: 065
     Dates: start: 202104
  8. UNSPECIFIED INGREDIENT [Concomitant]
     Active Substance: UNSPECIFIED INGREDIENT
     Indication: Product used for unknown indication
     Dosage: UNK
     Route: 065
  9. METHYLPREDNISOLONE [Concomitant]
     Active Substance: METHYLPREDNISOLONE
     Indication: Product used for unknown indication
     Dosage: 3 GM, A GRAM A DAY FOR 3 DAYS, OVER 4 WEEKS
     Route: 065
  10. METHYLPREDNISOLONE [Concomitant]
     Active Substance: METHYLPREDNISOLONE
     Dosage: 5 GRAM
     Route: 065

REACTIONS (5)
  - Immunisation reaction [Not Recovered/Not Resolved]
  - Flushing [Unknown]
  - Incorrect dosage administered [Unknown]
  - Visual impairment [Not Recovered/Not Resolved]
  - Multiple sclerosis relapse [Not Recovered/Not Resolved]

NARRATIVE: CASE EVENT DATE: 20210401
